FAERS Safety Report 5520228-7 (Version None)
Quarter: 2007Q4

REPORT INFORMATION
  Report Type: 
  Country: None (occurrence: None)
  Receive Date: 20071116
  Receipt Date: 20071109
  Transmission Date: 20080405
  Serious: Yes (Death)
  Sender: FDA-Public Use
  Company Number: CH-MERCK-0711CHE00006

PATIENT
  Age: 82 Year
  Sex: Male
  Weight: 57 kg

DRUGS (8)
  1. FOSAMAX [Suspect]
     Indication: OSTEOPOROSIS
     Route: 048
     Dates: start: 20070428, end: 20070512
  2. CALCIUM CARBONATE AND CHOLECALCIFEROL [Concomitant]
     Route: 048
  3. ESOMEPRAZOLE MAGNESIUM [Concomitant]
     Route: 048
     Dates: start: 20040101
  4. POLYETHYLENE GLYCOL 3350 AND POTASSIUM CHLORIDE AND SODIUM BICARBONATE [Concomitant]
     Route: 048
  5. CYANOCOBALAMIN [Concomitant]
     Route: 058
     Dates: start: 20070312
  6. RIFAMPIN [Concomitant]
     Route: 048
     Dates: start: 20070508
  7. VANCOMYCIN [Concomitant]
     Route: 042
     Dates: start: 20070508
  8. BENSERAZIDE HYDROCHLORIDE AND LEVODOPA [Concomitant]
     Route: 048
     Dates: start: 20070507, end: 20070510

REACTIONS (1)
  - OESOPHAGEAL PERFORATION [None]
